FAERS Safety Report 18573373 (Version 1)
Quarter: 2020Q4

REPORT INFORMATION
  Report Type: Spontaneous
  Country: US (occurrence: US)
  Receive Date: 20201203
  Receipt Date: 20201203
  Transmission Date: 20210114
  Serious: Yes (Other)
  Sender: FDA-Public Use
  Company Number: US-SUN PHARMACEUTICAL INDUSTRIES LTD-2020R1-269557

PATIENT
  Age: 12 Year
  Sex: Female

DRUGS (10)
  1. HALOBETASOL [Suspect]
     Active Substance: HALOBETASOL PROPIONATE
     Indication: PARONYCHIA
     Dosage: UNK
     Route: 065
  2. FLURANDRENOLIDE. [Suspect]
     Active Substance: FLURANDRENOLIDE
     Indication: PARONYCHIA
     Dosage: UNK
     Route: 065
  3. CLOBETASOL [Suspect]
     Active Substance: CLOBETASOL
     Indication: PARONYCHIA
     Dosage: 0.05 PERCENT, BID
     Route: 061
  4. SELUMETINIB. [Concomitant]
     Active Substance: SELUMETINIB
     Indication: NEUROFIBROMATOSIS
     Dosage: 65 MILLIGRAM, DAILY
     Route: 065
  5. CEPHALEXIN. [Suspect]
     Active Substance: CEPHALEXIN
     Indication: PARONYCHIA
     Dosage: 500 MILLIGRAM, TID
     Route: 065
  6. TAZAROTENE. [Suspect]
     Active Substance: TAZAROTENE
     Indication: PARONYCHIA
     Dosage: UNK
     Route: 061
  7. CLINDAMYCIN. [Suspect]
     Active Substance: CLINDAMYCIN
     Indication: PARONYCHIA
     Dosage: UNK
     Route: 048
  8. TIMOLOL. [Suspect]
     Active Substance: TIMOLOL
     Indication: PARONYCHIA
     Dosage: 0.5 PERCENT, DAILY
     Route: 065
  9. CEPHALEXIN. [Suspect]
     Active Substance: CEPHALEXIN
     Indication: STAPHYLOCOCCAL INFECTION
  10. MUPIROCIN. [Suspect]
     Active Substance: MUPIROCIN
     Indication: PARONYCHIA
     Dosage: UNK
     Route: 061

REACTIONS (2)
  - Condition aggravated [Unknown]
  - Treatment failure [Unknown]
